FAERS Safety Report 7345855-6 (Version None)
Quarter: 2011Q1

REPORT INFORMATION
  Report Type: 
  Country: None (occurrence: None)
  Receive Date: 20110311
  Receipt Date: 20110302
  Transmission Date: 20110831
  Serious: No
  Sender: FDA-Public Use
  Company Number: US-BIOGENIDEC-2010BI042972

PATIENT
  Sex: Female

DRUGS (5)
  1. KLONOPIN [Concomitant]
     Indication: HEAD TITUBATION
  2. ZANAFLEX [Concomitant]
     Indication: MUSCLE SPASMS
  3. TYSABRI [Suspect]
     Indication: MULTIPLE SCLEROSIS
     Route: 042
     Dates: start: 20101025, end: 20110201
  4. AVONEX [Concomitant]
     Indication: MULTIPLE SCLEROSIS
     Route: 030
  5. MECLIZINE [Concomitant]
     Indication: MULTIPLE SCLEROSIS

REACTIONS (11)
  - HEADACHE [None]
  - MOOD ALTERED [None]
  - PAIN [None]
  - VISION BLURRED [None]
  - DIZZINESS [None]
  - HYPOAESTHESIA [None]
  - COGNITIVE DISORDER [None]
  - SCOTOMA [None]
  - LOSS OF CONSCIOUSNESS [None]
  - HYPOTENSION [None]
  - PRURITUS [None]
